FAERS Safety Report 19503620 (Version 1)
Quarter: 2021Q3

REPORT INFORMATION
  Report Type: Other
  Country: US (occurrence: US)
  Receive Date: 20210708
  Receipt Date: 20210708
  Transmission Date: 20211014
  Serious: No
  Sender: FDA-Public Use
  Company Number: US-NEUROCRINE BIOSCIENCES INC.-2021NBI03315

PATIENT

DRUGS (8)
  1. INGREZZA [Suspect]
     Active Substance: VALBENAZINE
     Indication: TARDIVE DYSKINESIA
     Dosage: 40 MILLIGRAM, QD
     Route: 048
     Dates: start: 201904
  2. PROZAC [Concomitant]
     Active Substance: FLUOXETINE HYDROCHLORIDE
     Dosage: UNK
  3. ASPIRIN. [Concomitant]
     Active Substance: ASPIRIN
     Dosage: UNK
  4. TRAZODONE [Concomitant]
     Active Substance: TRAZODONE HYDROCHLORIDE
     Dosage: UNK
  5. OXYBUTYNIN. [Concomitant]
     Active Substance: OXYBUTYNIN CHLORIDE
     Dosage: UNK
  6. PLAVIX [Concomitant]
     Active Substance: CLOPIDOGREL BISULFATE
     Dosage: UNK
  7. COENZYME Q10 [Concomitant]
     Active Substance: DIETARY SUPPLEMENT\UBIDECARENONE
     Dosage: UNK
  8. INGREZZA [Suspect]
     Active Substance: VALBENAZINE
     Dosage: 80 MILLIGRAM, QD
     Route: 048

REACTIONS (1)
  - Tardive dyskinesia [Not Recovered/Not Resolved]
